FAERS Safety Report 14611806 (Version 1)
Quarter: 2018Q1

REPORT INFORMATION
  Report Type: Spontaneous
  Country: US (occurrence: US)
  Receive Date: 20180308
  Receipt Date: 20180308
  Transmission Date: 20180509
  Serious: No
  Sender: FDA-Public Use
  Company Number: US-PFIZER INC-2018093596

PATIENT
  Sex: Female

DRUGS (1)
  1. ADVIL LIQUI-GELS [Suspect]
     Active Substance: IBUPROFEN
     Dosage: UNK
     Dates: start: 20180305, end: 20180305

REACTIONS (5)
  - Drug administration error [Unknown]
  - Feeling abnormal [Unknown]
  - Presyncope [Unknown]
  - Burning sensation [Unknown]
  - Expired product administered [Unknown]

NARRATIVE: CASE EVENT DATE: 20180305
